FAERS Safety Report 14754240 (Version 2)
Quarter: 2018Q2

REPORT INFORMATION
  Report Type: Spontaneous
  Country: GB (occurrence: GB)
  Receive Date: 20180412
  Receipt Date: 20180608
  Transmission Date: 20180711
  Serious: Yes (Life-Threatening)
  Sender: FDA-Public Use
  Company Number: GB-009507513-1804GBR004344

PATIENT
  Age: 69 Year
  Sex: Female
  Weight: 105 kg

DRUGS (19)
  1. MAGNASPARTATE [Concomitant]
     Dosage: ON TUESDAY LUNCHTIME.
     Dates: start: 20171005
  2. NEXIUM [Concomitant]
     Active Substance: ESOMEPRAZOLE MAGNESIUM
     Indication: DYSPEPSIA
     Dosage: AS NECESSARY
  3. LOPERAMIDE [Concomitant]
     Active Substance: LOPERAMIDE
     Dosage: AFTER EACH LOOSE STOOL.
     Dates: start: 20170223
  4. PERINDOPRIL ERBUMINE. [Concomitant]
     Active Substance: PERINDOPRIL ERBUMINE
     Dosage: AT NIGHT.
     Dates: start: 20171121
  5. ASPIRIN. [Concomitant]
     Active Substance: ASPIRIN
     Dosage: WITH FOOD.
     Dates: start: 20171121, end: 20180307
  6. LEVOTHYROXINE SODIUM. [Concomitant]
     Active Substance: LEVOTHYROXINE SODIUM
     Dosage: BEFORE BREAKFAST.
     Dates: start: 20171121
  7. MAGNESIUM ASPARTATE [Concomitant]
     Active Substance: MAGNESIUM ASPARTATE
     Dosage: FOR 5 DAYS THEN ONE WEEKLY ON A...
     Dates: start: 20180118
  8. MIRTAZAPINE. [Suspect]
     Active Substance: MIRTAZAPINE
     Dates: start: 20171121
  9. NEXIUM I.V. [Concomitant]
     Active Substance: ESOMEPRAZOLE SODIUM
  10. CETRABEN EMOLLIENT CREAM [Concomitant]
     Dosage: 2 DF, QD
     Dates: start: 20171122
  11. THIAMINE. [Concomitant]
     Active Substance: THIAMINE
     Dosage: EACH MORNING.
     Dates: start: 20171121
  12. ACETAMINOPHEN. [Concomitant]
     Active Substance: ACETAMINOPHEN
     Indication: PAIN
     Dosage: UP TO 3 TIMES/DAY.
     Dates: start: 20180119
  13. RANITIDINE. [Concomitant]
     Active Substance: RANITIDINE
     Dates: start: 20171121
  14. SIMVASTATIN. [Concomitant]
     Active Substance: SIMVASTATIN
     Dosage: AT NIGHT.
     Dates: start: 20171121
  15. FOLIC ACID. [Concomitant]
     Active Substance: FOLIC ACID
     Dosage: 1 DF, QD
     Dates: start: 20171121
  16. FULTIUM D3 [Concomitant]
     Active Substance: CHOLECALCIFEROL
     Indication: VITAMIN D DEFICIENCY
     Dosage: 1 DF, QD
     Dates: start: 20170814
  17. GABAPENTIN. [Concomitant]
     Active Substance: GABAPENTIN
     Dosage: 3 DF, QD
     Dates: start: 20171121
  18. ACIDEX (CALCIUM CARBONATE (+) SODIUM ALGINATE (+) SODIUM BICARBONATE) [Concomitant]
     Active Substance: CALCIUM CARBONATE\SODIUM ALGINATE\SODIUM BICARBONATE
     Dosage: TAKE 10-20MLS  UP TO 4 TIMES DAILY. ; AS NECESSARY
     Dates: start: 20170210
  19. VITAMIN B (UNSPECIFIED) [Concomitant]
     Active Substance: VITAMIN B
     Dosage: 2 DF, QD
     Dates: start: 20171121

REACTIONS (2)
  - Platelet count decreased [Not Recovered/Not Resolved]
  - Contusion [Unknown]

NARRATIVE: CASE EVENT DATE: 20180316
